FAERS Safety Report 13822086 (Version 2)
Quarter: 2017Q3

REPORT INFORMATION
  Report Type: Spontaneous
  Country: HU (occurrence: HU)
  Receive Date: 20170801
  Receipt Date: 20170802
  Transmission Date: 20171127
  Serious: Yes (Death, Other)
  Sender: FDA-Public Use
  Company Number: HU-BAYER-2017-145104

PATIENT
  Age: 68 Year
  Sex: Male

DRUGS (5)
  1. MILURIT [Concomitant]
     Active Substance: ALLOPURINOL
  2. ULTRAVIST [Suspect]
     Active Substance: IOPROMIDE
     Indication: UROGRAM
     Dosage: UNK UNK, ONCE
     Route: 042
     Dates: start: 20170727, end: 20170727
  3. COVEREX [Concomitant]
  4. TALLITON [Concomitant]
     Indication: HYPERTENSION
  5. AMLODIPINE [Concomitant]
     Active Substance: AMLODIPINE BESYLATE
     Indication: HYPERTENSION

REACTIONS (4)
  - Epilepsy [None]
  - Death [Fatal]
  - Feeling hot [None]
  - Dyspnoea [None]

NARRATIVE: CASE EVENT DATE: 20170727
